FAERS Safety Report 7000953-1 (Version None)
Quarter: 2010Q3

REPORT INFORMATION
  Report Type: 
  Country: None (occurrence: None)
  Receive Date: 20100920
  Receipt Date: 20070614
  Transmission Date: 20110219
  Serious: Yes (Hospitalization, Other)
  Sender: FDA-Public Use
  Company Number: US-ASTRAZENECA-2006UW22948

PATIENT
  Sex: Female
  Weight: 150.1 kg

DRUGS (20)
  1. SEROQUEL [Suspect]
     Indication: INSOMNIA
     Dosage: 100 MG TO 300 MG
     Route: 048
     Dates: start: 20000101
  2. SEROQUEL [Suspect]
     Indication: ANXIETY
     Dosage: 100 MG TO 300 MG
     Route: 048
     Dates: start: 20000101
  3. SEROQUEL [Suspect]
     Dosage: STRENGTH- 100MG, 200MG  DOSE-100MG-400MG
     Route: 048
     Dates: start: 20020306
  4. SEROQUEL [Suspect]
     Dosage: STRENGTH- 100MG, 200MG  DOSE-100MG-400MG
     Route: 048
     Dates: start: 20020306
  5. RISPERDAL [Concomitant]
  6. TRAZODONE HCL [Concomitant]
     Indication: SLEEP DISORDER
     Route: 048
     Dates: start: 20010815
  7. PROZAC [Concomitant]
     Dosage: STRENGTH- 20MG, 40MG, 60MG  DOSE-20MG-60MG DAILY
     Dates: start: 19970702
  8. SERZONE [Concomitant]
     Dates: start: 20031022
  9. KLONOPIN [Concomitant]
     Dates: start: 20031022
  10. PROTONIX [Concomitant]
     Dates: start: 20040602
  11. ALLEGRA [Concomitant]
     Dates: start: 20040602
  12. LISINOPRIL [Concomitant]
     Dates: start: 20040602
  13. NORVASC [Concomitant]
     Dates: start: 20040602
  14. LITHIUM [Concomitant]
     Dosage: STRENGTH- 300MG  DOSE-300MG-900MG DAILY
     Dates: start: 20020306
  15. LASIX [Concomitant]
     Dosage: STRENGTH- 20MG, 40MG  DOSE- 20MG-40MG
     Route: 048
     Dates: start: 20010815
  16. DEPAKOTE [Concomitant]
     Indication: IMPULSE-CONTROL DISORDER
     Dosage: STRENGTH- 250MG, 1000MG,  DOSE- 250MG-1000MG
     Dates: start: 19970702
  17. TEMAZEPAM [Concomitant]
     Dates: start: 20020306
  18. WELLBUTRIN SR [Concomitant]
     Route: 048
  19. K-DUR [Concomitant]
     Route: 048
  20. PAXIL [Concomitant]
     Route: 048

REACTIONS (4)
  - DIABETES MELLITUS [None]
  - DIABETIC KETOACIDOSIS [None]
  - PANCREATITIS [None]
  - TYPE 2 DIABETES MELLITUS [None]
